FAERS Safety Report 8049325-1 (Version None)
Quarter: 2012Q1

REPORT INFORMATION
  Report Type: 
  Country: None (occurrence: None)
  Receive Date: 20120117
  Receipt Date: 20120112
  Transmission Date: 20120608
  Serious: Yes (Hospitalization)
  Sender: FDA-Public Use
  Company Number: US-ROCHE-1030275

PATIENT
  Age: 22 Month
  Sex: Male
  Weight: 12.5 kg

DRUGS (1)
  1. XELODA [Suspect]
     Indication: ACCIDENTAL DRUG INTAKE BY CHILD

REACTIONS (1)
  - ACCIDENTAL EXPOSURE [None]
